FAERS Safety Report 7687522-5 (Version None)
Quarter: 2011Q3

REPORT INFORMATION
  Report Type: 
  Country: None (occurrence: None)
  Receive Date: 20110817
  Receipt Date: 20110808
  Transmission Date: 20111222
  Serious: Yes (Hospitalization)
  Sender: FDA-Public Use
  Company Number: US-BIOGENIDEC-2010BI007131

PATIENT
  Age: 61 Year
  Sex: Male

DRUGS (2)
  1. AVONEX [Suspect]
     Indication: MULTIPLE SCLEROSIS
     Route: 030
     Dates: start: 19960101
  2. AVONEX [Suspect]
     Route: 030
     Dates: start: 20040601

REACTIONS (9)
  - MUSCULAR WEAKNESS [None]
  - FALL [None]
  - MEMORY IMPAIRMENT [None]
  - CEREBRAL HAEMORRHAGE [None]
  - HEAD INJURY [None]
  - INFLUENZA LIKE ILLNESS [None]
  - JOINT STIFFNESS [None]
  - COORDINATION ABNORMAL [None]
  - CONCUSSION [None]
